FAERS Safety Report 9610865 (Version 1)
Quarter: 2013Q4

REPORT INFORMATION
  Report Type: Spontaneous
  Country: HR (occurrence: HR)
  Receive Date: 20131009
  Receipt Date: 20131009
  Transmission Date: 20140711
  Serious: Yes (Other)
  Sender: FDA-Public Use
  Company Number: PHHY2013HR111139

PATIENT
  Sex: Male

DRUGS (5)
  1. DIGOXIN [Suspect]
     Indication: TACHYCARDIA FOETAL
     Dosage: MATERNAL DOSE 3X0.5 MG
     Route: 064
  2. DIGOXIN [Suspect]
     Dosage: MATERNAL DOSE 3X0.5 MG
     Route: 064
  3. DIGOXIN [Suspect]
     Dosage: MATERNAL DOSE 2X0.1 MG
     Route: 064
  4. AMIODARONE [Suspect]
     Dosage: MATERNAL DOSE 3X200 MG
     Route: 064
  5. AMIODARONE [Suspect]
     Dosage: MATERNAL DOSE 2X200 MG
     Route: 064

REACTIONS (5)
  - Tachycardia foetal [Unknown]
  - Hydrops foetalis [Recovered/Resolved]
  - Cardiac failure [Recovered/Resolved]
  - Neonatal respiratory distress syndrome [Recovering/Resolving]
  - Foetal exposure during pregnancy [Unknown]
